FAERS Safety Report 22115010 (Version 1)
Quarter: 2023Q1

REPORT INFORMATION
  Report Type: Spontaneous
  Country: US (occurrence: None)
  Receive Date: 20230318
  Receipt Date: 20230318
  Transmission Date: 20230418
  Serious: Yes (unspecified)
  Sender: FDA-Public Use
  Company Number: None

PATIENT
  Age: 64 Year
  Sex: Female

DRUGS (5)
  1. BRIMONIDINE TARTRATE [Suspect]
     Active Substance: BRIMONIDINE TARTRATE
     Indication: Glaucoma
     Dosage: 1 DROP TWICE A DAY OPHTHALMIC
     Route: 047
     Dates: start: 20220621, end: 20221215
  2. DORZOLAMIDE HCL AND TIMOLOL SOLUTION EYE [Concomitant]
  3. ROSUVASTATIN [Concomitant]
  4. CALCIUM [Concomitant]
     Active Substance: CALCIUM
  5. VITAMINS [Concomitant]
     Active Substance: VITAMINS

REACTIONS (4)
  - Ocular hyperaemia [None]
  - Eye pain [None]
  - Product contamination [None]
  - Recalled product administered [None]

NARRATIVE: CASE EVENT DATE: 20220621
